FAERS Safety Report 25510183 (Version 1)
Quarter: 2025Q3

REPORT INFORMATION
  Report Type: Spontaneous
  Country: US (occurrence: US)
  Receive Date: 20250703
  Receipt Date: 20250703
  Transmission Date: 20251021
  Serious: No
  Sender: RADIUS PHARM
  Company Number: US-RADIUS HEALTH INC.-2024US003125

PATIENT
  Age: 75 Year
  Sex: Female

DRUGS (1)
  1. TYMLOS [Suspect]
     Active Substance: ABALOPARATIDE
     Indication: Osteoporosis
     Route: 058
     Dates: start: 20240418

REACTIONS (5)
  - Sensory disturbance [Recovered/Resolved]
  - Injection site haemorrhage [Recovered/Resolved]
  - Feeling abnormal [Recovered/Resolved]
  - Product use issue [Unknown]
  - Product quality issue [Unknown]

NARRATIVE: CASE EVENT DATE: 20240419
